FAERS Safety Report 8452560-1 (Version None)
Quarter: 2012Q2

REPORT INFORMATION
  Report Type: 
  Country: None (occurrence: None)
  Receive Date: 20120620
  Receipt Date: 20120416
  Transmission Date: 20120825
  Serious: No
  Sender: FDA-Public Use
  Company Number: US-VERTEX PHARMACEUTICALS INC.-AE-2012-005510

PATIENT
  Sex: Male
  Weight: 85.806 kg

DRUGS (4)
  1. INCIVEK [Suspect]
     Indication: HEPATITIS C
     Route: 048
     Dates: start: 20120101, end: 20120326
  2. PEGASYS [Concomitant]
     Indication: HEPATITIS C
     Route: 058
     Dates: start: 20120101, end: 20120326
  3. FUROSEMIDE [Concomitant]
     Route: 048
  4. RIBSPHERE [Concomitant]
     Indication: HEPATITIS C
     Route: 048
     Dates: start: 20120101, end: 20120326

REACTIONS (1)
  - PLATELET COUNT DECREASED [None]
